FAERS Safety Report 9024615 (Version 1)
Quarter: 2013Q1

REPORT INFORMATION
  Report Type: Spontaneous
  Country: US (occurrence: US)
  Receive Date: 20130121
  Receipt Date: 20130121
  Transmission Date: 20140127
  Serious: Yes (Other)
  Sender: FDA-Public Use
  Company Number: US-AMGEN-USASP2013002917

PATIENT
  Age: 41 Year
  Sex: Male
  Weight: 115.19 kg

DRUGS (6)
  1. ENBREL [Suspect]
     Indication: PRODUCT USED FOR UNKNOWN INDICATION
     Dosage: 25 MG, 2 TIMES/WK
     Route: 058
  2. CYMBALTA [Concomitant]
     Dosage: 20 MG, UNK
  3. CENTRUM SILVER                     /02363801/ [Concomitant]
     Dosage: UNK
  4. ABILIFY [Concomitant]
     Dosage: 10 MG, UNK
  5. ASPIRIN [Concomitant]
     Dosage: 81 MG, UNK
  6. TYLENOL /00020001/ [Concomitant]
     Dosage: 325 MG, UNK

REACTIONS (2)
  - Tremor [Unknown]
  - Stress [Unknown]
